FAERS Safety Report 6231975-6 (Version None)
Quarter: 2009Q2

REPORT INFORMATION
  Report Type: 
  Country: None (occurrence: None)
  Receive Date: 20090616
  Receipt Date: 20090605
  Transmission Date: 20091009
  Serious: Yes (Hospitalization)
  Sender: FDA-Public Use
  Company Number: FR-WYE-H08287909

PATIENT
  Sex: Male

DRUGS (8)
  1. INIPOMP [Suspect]
     Indication: GASTROOESOPHAGEAL REFLUX DISEASE
     Route: 048
     Dates: start: 20070122
  2. INIPOMP [Suspect]
     Indication: OESOPHAGITIS
  3. XYZAL [Concomitant]
     Dosage: UNKNOWN
  4. VITAMIN B6 [Concomitant]
  5. SERESTA [Concomitant]
  6. VITAMIN B1 TAB [Concomitant]
  7. LYRICA [Concomitant]
     Dosage: UNKNOWN
  8. ATARAX [Concomitant]
     Dosage: UNKNOWN

REACTIONS (8)
  - DRY SKIN [None]
  - ECZEMA [None]
  - INSOMNIA [None]
  - LICHENIFICATION [None]
  - PRURITUS [None]
  - RASH ERYTHEMATOUS [None]
  - RASH MACULAR [None]
  - RASH PAPULAR [None]
